FAERS Safety Report 6252213-4 (Version None)
Quarter: 2009Q2

REPORT INFORMATION
  Report Type: 
  Country: None (occurrence: None)
  Receive Date: 20090629
  Receipt Date: 20090616
  Transmission Date: 20091009
  Serious: Yes (Hospitalization, Other)
  Sender: FDA-Public Use
  Company Number: 2009AP002446

PATIENT
  Age: 6 Year
  Sex: Male

DRUGS (8)
  1. CYCLOSPORINE [Suspect]
     Indication: PROPHYLAXIS AGAINST GRAFT VERSUS HOST DISEASE
     Dosage: 38.2 MG/KG PO; QD; 65 MG/M^2; IV; Q12H; 10 MG/KG; IV; QD
     Route: 048
  2. METHYLPREDNISOLONE [Concomitant]
  3. NIFEDIPINE [Concomitant]
  4. AMLODIPINE [Concomitant]
  5. MYCOPHENOLATE MOFETIL [Concomitant]
  6. BUSULFAN (BUSULFAN) [Concomitant]
  7. FLUDARABINE PHOSPHATE [Concomitant]
  8. ANTI-THYMOCYTE GLOBULIN NOS [Concomitant]

REACTIONS (8)
  - BONE MARROW OEDEMA [None]
  - CRYING [None]
  - HYPERTENSION [None]
  - INFUSION RELATED REACTION [None]
  - LEUKAEMIA RECURRENT [None]
  - NO THERAPEUTIC RESPONSE [None]
  - POST TRANSPLANT DISTAL LIMB SYNDROME [None]
  - STEM CELL TRANSPLANT [None]
